FAERS Safety Report 7038479-1 (Version None)
Quarter: 2010Q4

REPORT INFORMATION
  Report Type: 
  Country: None (occurrence: None)
  Receive Date: 20101011
  Receipt Date: 20100504
  Transmission Date: 20110411
  Serious: Yes (Other)
  Sender: FDA-Public Use
  Company Number: GB-PFIZER INC-2010039683

PATIENT
  Sex: Male

DRUGS (2)
  1. NEURONTIN [Suspect]
     Indication: INSOMNIA
     Dosage: UNK
     Dates: start: 20080101, end: 20100101
  2. ATENOLOL [Concomitant]

REACTIONS (4)
  - AMNESIA [None]
  - ANTEROGRADE AMNESIA [None]
  - BLOOD PRESSURE SYSTOLIC INCREASED [None]
  - CONFUSIONAL STATE [None]
